FAERS Safety Report 5663911 (Version 1)
Quarter: 2020Q3

REPORT INFORMATION
  Report Type: Spontaneous
  Country: GB (occurrence: None)
  Receive Date: 20041102
  Receipt Date: 20041102
  Transmission Date: 20201105
  Serious: Yes (Other)
  Sender: FDA-Public Use
  Company Number: 2004240453GB

PATIENT
  Age: 51 Year
  Sex: Male
  Weight: 82 kg

DRUGS (4)
  1. CARBAMAZEPINE. [Concomitant]
     Active Substance: CARBAMAZEPINE
  2. ETORICOXIB. [Suspect]
     Active Substance: ETORICOXIB
     Indication: PAIN
     Dosage: 60 MG, BID, ORAL
     Route: 048
  3. SOLU?MEDROL [Suspect]
     Active Substance: METHYLPREDNISOLONE SODIUM SUCCINATE
     Indication: PLANTAR FASCIITIS
     Dosage: IV
     Route: 042
  4. LIDOCAINE\METHYLPREDNISOLONE ACETATE [Suspect]
     Active Substance: LIDOCAINE\METHYLPREDNISOLONE ACETATE
     Indication: PLANTAR FASCIITIS
     Dosage: IV
     Route: 042
     Dates: start: 20040618, end: 20040618

REACTIONS (3)
  - Rash pruritic [None]
  - Drug interaction [None]
  - Rash follicular [None]

NARRATIVE: CASE EVENT DATE: 20040619
